FAERS Safety Report 21332005 (Version 1)
Quarter: 2022Q3

REPORT INFORMATION
  Report Type: Spontaneous
  Country: CN (occurrence: CN)
  Receive Date: 20220914
  Receipt Date: 20220914
  Transmission Date: 20221026
  Serious: Yes (Other)
  Sender: FDA-Public Use
  Company Number: CN-SA-2022SA373081

PATIENT
  Age: 70 Year
  Sex: Female

DRUGS (4)
  1. OXALIPLATIN [Suspect]
     Active Substance: OXALIPLATIN
     Indication: Rectal cancer
     Dosage: CHEMOTHERAPY REGIMEN
     Dates: start: 20220118
  2. OXALIPLATIN [Suspect]
     Active Substance: OXALIPLATIN
     Indication: Chemotherapy
  3. CAPECITABINE [Suspect]
     Active Substance: CAPECITABINE
     Indication: Rectal cancer
     Dosage: CHEMOTHERAPY REGIMEN
     Dates: start: 20220118
  4. CAPECITABINE [Suspect]
     Active Substance: CAPECITABINE
     Indication: Chemotherapy

REACTIONS (7)
  - Haematochezia [Recovered/Resolved]
  - Condition aggravated [Recovered/Resolved]
  - Poor quality sleep [Recovered/Resolved]
  - Decreased appetite [Recovered/Resolved]
  - Diarrhoea [Recovered/Resolved]
  - Chest pain [Recovered/Resolved]
  - Abdominal pain [Recovered/Resolved]

NARRATIVE: CASE EVENT DATE: 20220119
